FAERS Safety Report 14231255 (Version 1)
Quarter: 2017Q4

REPORT INFORMATION
  Report Type: Spontaneous
  Country: US (occurrence: US)
  Receive Date: 20171128
  Receipt Date: 20171128
  Transmission Date: 20180321
  Serious: No
  Sender: FDA-Public Use
  Company Number: US-JNJFOC-20171009272

PATIENT
  Age: 69 Year
  Sex: Female
  Weight: 63.05 kg

DRUGS (3)
  1. NIZORAL [Concomitant]
     Active Substance: KETOCONAZOLE
     Indication: PRODUCT USED FOR UNKNOWN INDICATION
     Route: 065
  2. WOMENS ROGAINE UNSCENTED [Suspect]
     Active Substance: MINOXIDIL
     Route: 061
  3. WOMENS ROGAINE UNSCENTED [Suspect]
     Active Substance: MINOXIDIL
     Indication: ALOPECIA
     Dosage: ABOUT 1/2 CAPFUL
     Route: 061
     Dates: start: 20171006

REACTIONS (3)
  - Contraindicated product administered [Unknown]
  - Product formulation issue [Unknown]
  - Hair disorder [Recovered/Resolved]

NARRATIVE: CASE EVENT DATE: 20171006
